FAERS Safety Report 23596771 (Version 3)
Quarter: 2025Q3

REPORT INFORMATION
  Report Type: Spontaneous
  Country: EU (occurrence: EU)
  Receive Date: 20240305
  Receipt Date: 20250717
  Transmission Date: 20251020
  Serious: Yes (Other)
  Sender: PFIZER
  Company Number: None

PATIENT
  Age: 55 Year
  Sex: Female

DRUGS (1)
  1. BOSUTINIB [Suspect]
     Active Substance: BOSUTINIB
     Indication: Chronic myeloid leukaemia
     Dosage: 400 MG/24 HOURS
     Route: 048
     Dates: start: 20240102, end: 20240118

REACTIONS (1)
  - Cutaneous vasculitis [Recovered/Resolved]

NARRATIVE: CASE EVENT DATE: 20240117
